FAERS Safety Report 7197589-9 (Version None)
Quarter: 2010Q4

REPORT INFORMATION
  Report Type: 
  Country: None (occurrence: None)
  Receive Date: 20101227
  Receipt Date: 20101221
  Transmission Date: 20110411
  Serious: Yes (Hospitalization)
  Sender: FDA-Public Use
  Company Number: FR-SANOFI-AVENTIS-2010SA077041

PATIENT
  Age: 63 Year
  Sex: Female
  Weight: 73 kg

DRUGS (5)
  1. AMAREL [Suspect]
     Indication: TYPE 2 DIABETES MELLITUS
     Route: 048
     Dates: start: 20101111, end: 20101122
  2. TEMESTA [Concomitant]
     Indication: ANXIETY
     Dates: start: 20101110, end: 20101121
  3. KALEORID [Concomitant]
     Route: 048
     Dates: start: 20101110, end: 20101122
  4. VITAMIN B1 AND B6 [Concomitant]
     Route: 048
     Dates: start: 20101115, end: 20101122
  5. TOPALGIC [Concomitant]
     Route: 048
     Dates: start: 20101110, end: 20101110

REACTIONS (3)
  - ACUTE GENERALISED EXANTHEMATOUS PUSTULOSIS [None]
  - PYREXIA [None]
  - RASH PUSTULAR [None]
